FAERS Safety Report 12466944 (Version 1)
Quarter: 2016Q2

REPORT INFORMATION
  Report Type: Spontaneous
  Country: GB (occurrence: GB)
  Receive Date: 20160615
  Receipt Date: 20160615
  Transmission Date: 20160815
  Serious: Yes (Other)
  Sender: FDA-Public Use
  Company Number: GB-BEH-2016070112

PATIENT
  Age: 72 Year
  Sex: Male
  Weight: 89 kg

DRUGS (2)
  1. PRIVIGEN [Suspect]
     Active Substance: HUMAN IMMUNOGLOBULIN G
     Dosage: UNK
     Route: 042
     Dates: start: 2007
  2. PRIVIGEN [Suspect]
     Active Substance: HUMAN IMMUNOGLOBULIN G
     Indication: CHRONIC INFLAMMATORY DEMYELINATING POLYRADICULONEUROPATHY
     Dosage: 90 G, UNK
     Route: 042
     Dates: start: 20160524, end: 20160524

REACTIONS (2)
  - Blister [Recovered/Resolved]
  - Rash papular [Recovered/Resolved]

NARRATIVE: CASE EVENT DATE: 20160525
